FAERS Safety Report 25611849 (Version 2)
Quarter: 2025Q3

REPORT INFORMATION
  Report Type: Spontaneous
  Country: EU (occurrence: EU)
  Receive Date: 20250728
  Receipt Date: 20250905
  Transmission Date: 20251020
  Serious: Yes (Other)
  Sender: ORGANON
  Company Number: EU-ORGANON-O2507FRA001783

PATIENT
  Sex: Male
  Weight: 70 kg

DRUGS (2)
  1. BETAMETHASONE [Suspect]
     Active Substance: BETAMETHASONE
     Indication: Rheumatoid arthritis
     Dosage: HALF A TABLET OF CELESTENE 2 MG EVERY 2 DAYS
     Route: 048
     Dates: start: 1958
  2. BETAMETHASONE [Suspect]
     Active Substance: BETAMETHASONE
     Dosage: 1/2 TABLET EVERY DAY
     Route: 048

REACTIONS (2)
  - Rheumatoid arthritis [Not Recovered/Not Resolved]
  - Incorrect product administration duration [Unknown]
